FAERS Safety Report 13539954 (Version 2)
Quarter: 2017Q2

REPORT INFORMATION
  Report Type: Spontaneous
  Country: US (occurrence: US)
  Receive Date: 20170512
  Receipt Date: 20170619
  Transmission Date: 20170830
  Serious: No
  Sender: FDA-Public Use
  Company Number: US-GLAXOSMITHKLINE-US2017069417

PATIENT
  Sex: Male
  Weight: 95.69 kg

DRUGS (3)
  1. GLARGINE [Concomitant]
     Dosage: 54 DF, U
  2. TANZEUM [Suspect]
     Active Substance: ALBIGLUTIDE
     Indication: TYPE 2 DIABETES MELLITUS
     Dosage: 30 MG, U
     Route: 042
  3. METFORMIN [Concomitant]
     Active Substance: METFORMIN HYDROCHLORIDE
     Dosage: 1000 MG, QD

REACTIONS (1)
  - Wrong technique in device usage process [Unknown]
